FAERS Safety Report 13075265 (Version 2)
Quarter: 2017Q1

REPORT INFORMATION
  Report Type: Spontaneous
  Country: US (occurrence: US)
  Receive Date: 20161230
  Receipt Date: 20170328
  Transmission Date: 20170428
  Serious: Yes (Disabling, Other)
  Sender: FDA-Public Use
  Company Number: US-AMGEN-USASP2016183143

PATIENT
  Age: 72 Year
  Sex: Female
  Weight: 75.74 kg

DRUGS (11)
  1. ATORVASTATIN [Concomitant]
     Active Substance: ATORVASTATIN
     Indication: HYPERLIPIDAEMIA
     Dosage: 40 UNK, QHS
     Route: 048
  2. CALTRATE [Concomitant]
     Active Substance: CALCIUM CARBONATE
     Dosage: UNK
  3. PROLIA [Suspect]
     Active Substance: DENOSUMAB
     Indication: OSTEOPOROSIS POSTMENOPAUSAL
     Dosage: 60 MG/ML, Q6MO
     Route: 058
     Dates: start: 20150129, end: 20160309
  4. ATORVASTATIN [Concomitant]
     Active Substance: ATORVASTATIN
     Dosage: 20 MG, QD
     Route: 048
  5. VITAMIN C [Concomitant]
     Active Substance: ASCORBIC ACID
     Dosage: 500 MG, UNK
  6. FLUTICASONE PROPIONATE. [Concomitant]
     Active Substance: FLUTICASONE PROPIONATE
     Dosage: 50 MUG, UNK
  7. CYCLOBENZAPRINE HCL [Concomitant]
     Active Substance: CYCLOBENZAPRINE HYDROCHLORIDE
     Dosage: 5 MG, QD
     Route: 048
  8. FUROSEMIDE. [Concomitant]
     Active Substance: FUROSEMIDE
     Dosage: 40 MG, QHS
  9. VITAMIN D3 [Concomitant]
     Active Substance: CHOLECALCIFEROL
     Dosage: 1000 UNIT, UNK
  10. VITAMIN D3 [Concomitant]
     Active Substance: CHOLECALCIFEROL
     Dosage: 5000 IU, QD
     Route: 065
  11. ASPIRIN. [Concomitant]
     Active Substance: ASPIRIN
     Dosage: 81 MG, QHS
     Route: 048

REACTIONS (18)
  - Weight decreased [Unknown]
  - Oedema [Unknown]
  - Dizziness [Unknown]
  - Arthralgia [Unknown]
  - Hypertension [Unknown]
  - Hyperparathyroidism primary [Unknown]
  - Deafness unilateral [Not Recovered/Not Resolved]
  - Cough [Unknown]
  - Polyuria [Unknown]
  - Parathyroid tumour benign [Unknown]
  - Speech sound disorder [Unknown]
  - Vertigo [Unknown]
  - Tinnitus [Unknown]
  - Anxiety [Unknown]
  - Body height decreased [Unknown]
  - Back pain [Unknown]
  - Feeling abnormal [Unknown]
  - Fatigue [Unknown]

NARRATIVE: CASE EVENT DATE: 20150129
